FAERS Safety Report 22099469 (Version 2)
Quarter: 2023Q2

REPORT INFORMATION
  Report Type: Report from Study
  Country: ES (occurrence: ES)
  Receive Date: 20230315
  Receipt Date: 20230609
  Transmission Date: 20230722
  Serious: Yes (Hospitalization)
  Sender: FDA-Public Use
  Company Number: ES-DSJP-DSU-2022-137293

PATIENT
  Age: 77 Year
  Sex: Female
  Weight: 92.4 kg

DRUGS (26)
  1. FAM-TRASTUZUMAB DERUXTECAN-NXKI [Suspect]
     Active Substance: FAM-TRASTUZUMAB DERUXTECAN-NXKI
     Indication: Non-small cell lung cancer metastatic
     Dosage: 5.4 MG/KG, ONCE EVERY 3 WK
     Route: 041
     Dates: start: 20220517, end: 20220517
  2. FAM-TRASTUZUMAB DERUXTECAN-NXKI [Suspect]
     Active Substance: FAM-TRASTUZUMAB DERUXTECAN-NXKI
     Dosage: 5.4 MG/KG, ONCE EVERY 3 WK
     Route: 041
     Dates: start: 20220608, end: 20220608
  3. FAM-TRASTUZUMAB DERUXTECAN-NXKI [Suspect]
     Active Substance: FAM-TRASTUZUMAB DERUXTECAN-NXKI
     Dosage: 5.4 MG/KG, ONCE EVERY 3 WK
     Route: 041
     Dates: start: 20220628, end: 20220628
  4. FAM-TRASTUZUMAB DERUXTECAN-NXKI [Suspect]
     Active Substance: FAM-TRASTUZUMAB DERUXTECAN-NXKI
     Dosage: 5.4 MG/KG, ONCE EVERY 3 WK
     Route: 041
     Dates: start: 20220719, end: 20220719
  5. FAM-TRASTUZUMAB DERUXTECAN-NXKI [Suspect]
     Active Substance: FAM-TRASTUZUMAB DERUXTECAN-NXKI
     Dosage: 5.4 MG/KG, ONCE EVERY 3 WK
     Route: 041
     Dates: start: 20220808, end: 20220808
  6. FAM-TRASTUZUMAB DERUXTECAN-NXKI [Suspect]
     Active Substance: FAM-TRASTUZUMAB DERUXTECAN-NXKI
     Dosage: 5.4 MG/KG, ONCE EVERY 3 WK
     Route: 041
     Dates: start: 20220830, end: 20220830
  7. FAM-TRASTUZUMAB DERUXTECAN-NXKI [Suspect]
     Active Substance: FAM-TRASTUZUMAB DERUXTECAN-NXKI
     Dosage: 5.4 MG/KG, ONCE EVERY 3 WK
     Route: 041
     Dates: start: 20220919, end: 20220919
  8. FAM-TRASTUZUMAB DERUXTECAN-NXKI [Suspect]
     Active Substance: FAM-TRASTUZUMAB DERUXTECAN-NXKI
     Dosage: 4.4 MG/KG, ONCE EVERY 3 WK
     Route: 041
     Dates: start: 20221011, end: 20221011
  9. FAM-TRASTUZUMAB DERUXTECAN-NXKI [Suspect]
     Active Substance: FAM-TRASTUZUMAB DERUXTECAN-NXKI
     Dosage: 3.2 MG/KG, ONCE EVERY 3 WK
     Route: 041
     Dates: start: 20221103, end: 20221103
  10. FAM-TRASTUZUMAB DERUXTECAN-NXKI [Suspect]
     Active Substance: FAM-TRASTUZUMAB DERUXTECAN-NXKI
     Dosage: 3.2 MG/KG, ONCE EVERY 3 WK
     Route: 041
     Dates: start: 20221123, end: 20221123
  11. PEMBROLIZUMAB [Suspect]
     Active Substance: PEMBROLIZUMAB
     Indication: Non-small cell lung cancer metastatic
     Dosage: 200 MG, ONCE EVERY 3 WK
     Route: 042
     Dates: start: 20220517, end: 20220517
  12. PEMBROLIZUMAB [Suspect]
     Active Substance: PEMBROLIZUMAB
     Dosage: 200 MG, ONCE EVERY 3 WK
     Route: 042
     Dates: start: 20220608, end: 20220608
  13. PEMBROLIZUMAB [Suspect]
     Active Substance: PEMBROLIZUMAB
     Dosage: 200 MG, ONCE EVERY 3 WK
     Route: 042
     Dates: start: 20220628, end: 20220628
  14. PEMBROLIZUMAB [Suspect]
     Active Substance: PEMBROLIZUMAB
     Dosage: 200 MG, ONCE EVERY 3 WK
     Route: 042
     Dates: start: 20220719, end: 20220719
  15. PEMBROLIZUMAB [Suspect]
     Active Substance: PEMBROLIZUMAB
     Dosage: 200 MG, ONCE EVERY 3 WK
     Route: 042
     Dates: start: 20220808, end: 20220808
  16. PEMBROLIZUMAB [Suspect]
     Active Substance: PEMBROLIZUMAB
     Dosage: 200 MG, ONCE EVERY 3 WK
     Route: 042
     Dates: start: 20220830, end: 20220830
  17. PEMBROLIZUMAB [Suspect]
     Active Substance: PEMBROLIZUMAB
     Dosage: 200 MG, ONCE EVERY 3 WK
     Route: 042
     Dates: start: 20220919, end: 20220919
  18. PEMBROLIZUMAB [Suspect]
     Active Substance: PEMBROLIZUMAB
     Dosage: 200 MG, ONCE EVERY 3 WK
     Route: 042
     Dates: start: 20221011, end: 20221011
  19. PEMBROLIZUMAB [Suspect]
     Active Substance: PEMBROLIZUMAB
     Dosage: 200 MG, ONCE EVERY 3 WK
     Route: 042
     Dates: start: 20221103, end: 20221103
  20. PEMBROLIZUMAB [Suspect]
     Active Substance: PEMBROLIZUMAB
     Dosage: 200 MG, ONCE EVERY 3 WK
     Route: 042
     Dates: start: 20221123, end: 20221123
  21. RABEPRAZOLE [Concomitant]
     Active Substance: RABEPRAZOLE
     Indication: Cholelithiasis
     Dosage: 20 MG, QD
     Route: 048
     Dates: start: 20220630
  22. EDOXABAN TOSYLATE [Concomitant]
     Active Substance: EDOXABAN TOSYLATE
     Indication: Thrombosis prophylaxis
     Dosage: 60 MG, QD
     Route: 048
     Dates: start: 20220511, end: 20220927
  23. ONDANSETRON [Concomitant]
     Active Substance: ONDANSETRON
     Indication: Antiemetic supportive care
     Dosage: 4 MG, AS NEEDED
     Route: 048
     Dates: start: 20220523
  24. ONDANSETRON [Concomitant]
     Active Substance: ONDANSETRON
     Indication: Nausea
     Dosage: 1 CAPSULE, ONCE EVERY 1 WK
     Route: 048
     Dates: start: 20220703
  25. POTASSIUM [Concomitant]
     Active Substance: POTASSIUM
     Indication: Hypokalaemia
     Dosage: 600 MG, BID
     Route: 048
     Dates: start: 20221001
  26. ACETAMINOPHEN [Concomitant]
     Active Substance: ACETAMINOPHEN
     Indication: Back pain
     Dosage: 1000 MG, AS NEEDED
     Route: 048
     Dates: start: 20220815, end: 20220928

REACTIONS (1)
  - Colitis [Recovered/Resolved]

NARRATIVE: CASE EVENT DATE: 20221013
